FAERS Safety Report 12309034 (Version 1)
Quarter: 2016Q2

REPORT INFORMATION
  Report Type: Spontaneous
  Country: US (occurrence: None)
  Receive Date: 20160426
  Receipt Date: 20160426
  Transmission Date: 20160815
  Serious: Yes (Other)
  Sender: FDA-Public Use
  Company Number: None

PATIENT
  Age: 17 Year
  Sex: Female
  Weight: 58.97 kg

DRUGS (3)
  1. CORICIDIN HBP COUGH AND COLD COUGH SUPPRESSANT, ANTIHISTAMINE [Suspect]
     Active Substance: CHLORPHENIRAMINE MALEATE\DEXTROMETHORPHAN HYDROBROMIDE
     Indication: OVERDOSE
     Route: 048
  2. CORICIDIN HBP COUGH AND COLD COUGH SUPPRESSANT, ANTIHISTAMINE [Suspect]
     Active Substance: CHLORPHENIRAMINE MALEATE\DEXTROMETHORPHAN HYDROBROMIDE
     Indication: PSYCHOMOTOR HYPERACTIVITY
     Route: 048
  3. ZOLOFT [Concomitant]
     Active Substance: SERTRALINE HYDROCHLORIDE

REACTIONS (3)
  - Psychomotor hyperactivity [None]
  - Overdose [None]
  - Intentional product misuse [None]

NARRATIVE: CASE EVENT DATE: 20160422
